FAERS Safety Report 14871995 (Version 2)
Quarter: 2018Q2

REPORT INFORMATION
  Report Type: Spontaneous
  Country: FR (occurrence: FR)
  Receive Date: 20180509
  Receipt Date: 20180525
  Transmission Date: 20180711
  Serious: Yes (Hospitalization, Disabling)
  Sender: FDA-Public Use
  Company Number: FR-BAUSCH-BL-2018-013165

PATIENT
  Age: 71 Year
  Sex: Female
  Weight: 71 kg

DRUGS (11)
  1. REVLIMID [Suspect]
     Active Substance: LENALIDOMIDE
     Indication: PLASMA CELL MYELOMA
     Dosage: 525 MG IN 28 DAYS (25 MG)
     Route: 048
     Dates: start: 20160405
  2. ZOMETA [Suspect]
     Active Substance: ZOLEDRONIC ACID
     Indication: PRODUCT USED FOR UNKNOWN INDICATION
     Route: 065
     Dates: start: 20160405, end: 20170502
  3. SODIUM BICARBONATE. [Concomitant]
     Active Substance: SODIUM BICARBONATE
     Indication: GINGIVITIS
     Route: 048
     Dates: start: 20170404
  4. CACIT D3 [Concomitant]
     Active Substance: CALCIUM\CHOLECALCIFEROL
     Indication: OSTEOPOROSIS PROPHYLAXIS
     Dosage: 1;UNSPECIFIED UNIT DOSAGE IN 1 DAYS
     Route: 048
     Dates: start: 2016
  5. VENIRENE [Concomitant]
     Indication: PERIPHERAL VENOUS DISEASE
     Dosage: DOSE: 2 UNSPECIFIED DOSE UNIT IN DAILY
     Route: 048
     Dates: start: 2016
  6. SIMVASTATIN. [Concomitant]
     Active Substance: SIMVASTATIN
     Indication: DYSLIPIDAEMIA
     Route: 048
     Dates: start: 2016
  7. ASPERGIC [Concomitant]
     Active Substance: ASPIRIN DL-LYSINE
     Indication: THROMBOSIS PROPHYLAXIS
     Route: 048
     Dates: start: 20170405
  8. ELUDRILPERIO [Concomitant]
     Active Substance: CHLORHEXIDINE GLUCONATE
     Indication: GINGIVITIS
     Route: 048
     Dates: start: 20170404
  9. XYLOCAINE [Concomitant]
     Active Substance: LIDOCAINE HYDROCHLORIDE
     Indication: GINGIVITIS
     Route: 048
     Dates: start: 20170404
  10. DEXAMETHASONE. [Suspect]
     Active Substance: DEXAMETHASONE
     Indication: PLASMA CELL MYELOMA
     Dosage: 40 MG IN 1 WEEK
     Route: 048
     Dates: start: 20160405
  11. DEXAMETHASONE. [Suspect]
     Active Substance: DEXAMETHASONE
     Dosage: 40 MG IN WEEK
     Route: 048
     Dates: start: 20161115, end: 20171010

REACTIONS (3)
  - Cataract [Recovered/Resolved]
  - Osteonecrosis of jaw [Recovered/Resolved]
  - Cataract [Recovered/Resolved]

NARRATIVE: CASE EVENT DATE: 20171010
